FAERS Safety Report 19890637 (Version 1)
Quarter: 2021Q3

REPORT INFORMATION
  Report Type: Spontaneous
  Country: US (occurrence: US)
  Receive Date: 20210928
  Receipt Date: 20210928
  Transmission Date: 20211014
  Serious: No
  Sender: FDA-Public Use
  Company Number: US-ASTRAZENECA-2021A746352

PATIENT
  Age: 26367 Day
  Sex: Male
  Weight: 78.5 kg

DRUGS (1)
  1. BYDUREON BCISE [Suspect]
     Active Substance: EXENATIDE
     Indication: DIABETES MELLITUS
     Route: 058

REACTIONS (3)
  - Drug delivery system issue [Unknown]
  - Device leakage [Unknown]
  - Injury associated with device [Unknown]

NARRATIVE: CASE EVENT DATE: 20210923
